FAERS Safety Report 6625804-6 (Version None)
Quarter: 2010Q1

REPORT INFORMATION
  Report Type: 
  Country: None (occurrence: None)
  Receive Date: 20100310
  Receipt Date: 20100303
  Transmission Date: 20100710
  Serious: Yes (Death, Hospitalization, Other)
  Sender: FDA-Public Use
  Company Number: JP-MERCK-1002USA01734

PATIENT
  Age: 76 Year
  Sex: Female
  Weight: 30 kg

DRUGS (11)
  1. JANUVIA [Suspect]
     Indication: DIABETES MELLITUS
     Route: 048
     Dates: start: 20100108, end: 20100201
  2. AMLODIPINE [Concomitant]
     Indication: HYPERTENSION
     Route: 048
     Dates: end: 20100202
  3. VASOLAN [Concomitant]
     Indication: ARRHYTHMIA
     Route: 048
     Dates: end: 20100202
  4. VOGLIBOSE [Concomitant]
     Indication: DIABETES MELLITUS
     Route: 048
     Dates: start: 20091119, end: 20100120
  5. VOGLIBOSE [Concomitant]
     Route: 048
     Dates: start: 20100202, end: 20100202
  6. MELBIN [Concomitant]
     Indication: DIABETES MELLITUS
     Route: 048
     Dates: start: 20091119, end: 20100202
  7. ACTOS [Concomitant]
     Indication: DIABETES MELLITUS
     Route: 048
     Dates: start: 20091225, end: 20100202
  8. ALDACTONE [Concomitant]
     Indication: CARDIAC FAILURE
     Route: 065
     Dates: start: 20091225, end: 20100202
  9. FOSMICIN [Concomitant]
     Indication: ENTEROCOLITIS
     Route: 065
     Dates: start: 20100125, end: 20100202
  10. BIOFERMIN R [Concomitant]
     Indication: DIARRHOEA
     Route: 048
     Dates: start: 20091201, end: 20100124
  11. BIOFERMIN R [Concomitant]
     Route: 048
     Dates: start: 20100125, end: 20100202

REACTIONS (2)
  - DEATH [None]
  - DIARRHOEA [None]
